FAERS Safety Report 15367139 (Version 1)
Quarter: 2018Q3

REPORT INFORMATION
  Report Type: Spontaneous
  Country: US (occurrence: US)
  Receive Date: 20180910
  Receipt Date: 20180910
  Transmission Date: 20181010
  Serious: No
  Sender: FDA-Public Use
  Company Number: US-ALLERGAN-1824575US

PATIENT
  Age: 77 Year
  Sex: Male

DRUGS (9)
  1. LOSARTAN. [Concomitant]
     Active Substance: LOSARTAN
     Dosage: 50 MG, BID
     Route: 048
  2. AMLODIPINE [Concomitant]
     Active Substance: AMLODIPINE BESYLATE
     Dosage: 5 MG, QD
  3. CARAFATE [Suspect]
     Active Substance: SUCRALFATE
     Indication: RADIATION INJURY
     Dosage: UNK
     Route: 054
  4. CLOPIDOGREL BISULFATE. [Concomitant]
     Active Substance: CLOPIDOGREL BISULFATE
  5. TAMSULOSIN HYDROCHLORIDE. [Concomitant]
     Active Substance: TAMSULOSIN HYDROCHLORIDE
  6. ATORVASTATIN [Concomitant]
     Active Substance: ATORVASTATIN
     Dosage: 50 MG, QD
  7. FISH OIL [Concomitant]
     Active Substance: FISH OIL
  8. COENZYME Q10 [Concomitant]
     Active Substance: UBIDECARENONE
  9. ISOSORBIDE ER [Concomitant]
     Active Substance: ISOSORBIDE
     Dosage: 30 MG, QD

REACTIONS (1)
  - Drug prescribing error [Unknown]
